FAERS Safety Report 8605061-1 (Version None)
Quarter: 2012Q3

REPORT INFORMATION
  Report Type: 
  Country: None (occurrence: None)
  Receive Date: 20120820
  Receipt Date: 20120807
  Transmission Date: 20120928
  Serious: Yes (Congenital Anomaly)
  Sender: FDA-Public Use
  Company Number: IT-SANOFI-AVENTIS-2012SA056938

PATIENT
  Sex: Male

DRUGS (1)
  1. LEFLUNOMIDE [Suspect]
     Route: 064

REACTIONS (6)
  - FOETAL EXPOSURE DURING PREGNANCY [None]
  - SPINA BIFIDA OCCULTA [None]
  - CHONDRODYSTROPHY [None]
  - HEART BLOCK CONGENITAL [None]
  - PIERRE ROBIN SYNDROME [None]
  - PATENT DUCTUS ARTERIOSUS [None]
